FAERS Safety Report 23543080 (Version 1)
Quarter: 2024Q1

REPORT INFORMATION
  Report Type: Spontaneous
  Country: CN (occurrence: CN)
  Receive Date: 20240220
  Receipt Date: 20240220
  Transmission Date: 20240410
  Serious: Yes (Hospitalization, Other)
  Sender: FDA-Public Use
  Company Number: CN-MLMSERVICE-2024020548179221

PATIENT
  Age: 55 Year
  Sex: Female
  Weight: 61 kg

DRUGS (12)
  1. PACLITAXEL [Suspect]
     Active Substance: PACLITAXEL
     Indication: Metastases to bone
     Dosage: 2 CYCLICAL?IVD D1, 1ST CYCLE
     Route: 042
     Dates: start: 20211202, end: 20211223
  2. CISPLATIN [Concomitant]
     Active Substance: CISPLATIN
     Indication: Metastatic squamous cell carcinoma
     Dosage: IVD D1
     Dates: start: 20211202, end: 20220303
  3. CAMRELIZUMAB [Concomitant]
     Active Substance: CAMRELIZUMAB
     Indication: Squamous cell carcinoma of the cervix
     Dosage: IVD D1
     Route: 042
     Dates: start: 20211202, end: 20220303
  4. CISPLATIN [Concomitant]
     Active Substance: CISPLATIN
     Indication: Metastatic squamous cell carcinoma
     Dosage: IVD D2
     Route: 042
     Dates: start: 20211202, end: 20220303
  5. CISPLATIN [Concomitant]
     Active Substance: CISPLATIN
     Indication: Squamous cell carcinoma of the cervix
     Dosage: IVD D1
     Route: 042
     Dates: start: 20211202, end: 20220303
  6. CAMRELIZUMAB [Concomitant]
     Active Substance: CAMRELIZUMAB
     Indication: Metastases to bone
     Dosage: IVD D1
     Route: 042
     Dates: start: 20211202, end: 20220303
  7. CAMRELIZUMAB [Concomitant]
     Active Substance: CAMRELIZUMAB
     Indication: Metastatic squamous cell carcinoma
     Dosage: IVD D1
     Route: 042
     Dates: start: 20211202, end: 20220303
  8. CISPLATIN [Concomitant]
     Active Substance: CISPLATIN
     Indication: Metastases to bone
     Dosage: IVD D1
     Dates: start: 20211202, end: 20220303
  9. CISPLATIN [Concomitant]
     Active Substance: CISPLATIN
     Indication: Metastatic squamous cell carcinoma
     Dosage: IVD D1
     Dates: start: 20211202, end: 20220303
  10. CISPLATIN [Concomitant]
     Active Substance: CISPLATIN
     Indication: Metastases to bone
     Dosage: IVD D1
     Dates: start: 20211202, end: 20220303
  11. PACLITAXEL [Suspect]
     Active Substance: PACLITAXEL
     Indication: Squamous cell carcinoma of the cervix
     Dosage: 2 CYCLICAL?IVD D1, 1ST CYCLE
     Route: 042
     Dates: start: 20211202, end: 20211223
  12. PACLITAXEL [Suspect]
     Active Substance: PACLITAXEL
     Indication: Metastatic squamous cell carcinoma
     Dosage: 2 CYCLICAL?IVD D1, 1ST CYCLE
     Dates: start: 20211202, end: 20211223

REACTIONS (1)
  - Bone pain [Recovered/Resolved]

NARRATIVE: CASE EVENT DATE: 20211226
